FAERS Safety Report 7059477-8 (Version None)
Quarter: 2010Q4

REPORT INFORMATION
  Report Type: 
  Country: None (occurrence: None)
  Receive Date: 20101025
  Receipt Date: 20101022
  Transmission Date: 20110411
  Serious: Yes (Other)
  Sender: FDA-Public Use
  Company Number: BR-JNJFOC-20100904717

PATIENT
  Age: 39 Year
  Sex: Female

DRUGS (2)
  1. CAELYX [Suspect]
     Indication: MALIGNANT PERITONEAL NEOPLASM
     Dosage: TWO CYCLES
     Route: 042
  2. CAELYX [Suspect]
     Indication: OVARIAN CANCER
     Dosage: TWO CYCLES
     Route: 042

REACTIONS (1)
  - TUMOUR MARKER INCREASED [None]
